FAERS Safety Report 10588021 (Version 2)
Quarter: 2014Q4

REPORT INFORMATION
  Report Type: Spontaneous
  Country: AU (occurrence: AU)
  Receive Date: 20141117
  Receipt Date: 20141117
  Transmission Date: 20150529
  Serious: Yes (Other)
  Sender: FDA-Public Use
  Company Number: AU-PFIZER INC-2014259935

PATIENT
  Sex: Male
  Weight: 78 kg

DRUGS (10)
  1. THYROXINE [Concomitant]
     Active Substance: LEVOTHYROXINE
     Dosage: 50 ?G, 1X/DAY IN AM
  2. ATACAND [Concomitant]
     Active Substance: CANDESARTAN CILEXETIL
     Dosage: 8 MG, 1X/DAY IN AM
  3. LEVEMIR [Concomitant]
     Active Substance: INSULIN DETEMIR
     Dosage: 24 ML, 1X/DAY IN AM
  4. CAVERJECT [Suspect]
     Active Substance: ALPROSTADIL
     Indication: ERECTILE DYSFUNCTION
     Dosage: 20 UG, AS NEEDED
  5. THYROXINE [Concomitant]
     Active Substance: LEVOTHYROXINE
     Dosage: 100 ?G, 1X/DAY IN AM
  6. LEVEMIR [Concomitant]
     Active Substance: INSULIN DETEMIR
     Dosage: 5 ML, 1X/DAY IN PM
  7. PANADOL [Concomitant]
     Active Substance: ACETAMINOPHEN
     Dosage: 2 DF, 3X/DAY
  8. CRESTOR [Concomitant]
     Active Substance: ROSUVASTATIN CALCIUM
     Dosage: 40 MG, 1X/DAY IN PM
  9. VOLTAREN [Concomitant]
     Active Substance: DICLOFENAC SODIUM
     Dosage: 50 MG, ^2 TIMES FRIDAY PER DAY AND SATURDAY BEFORE GOLF^
  10. APIDRA SOLOSTAR [Concomitant]
     Active Substance: INSULIN GLULISINE
     Dosage: 5 TIMES A DAY AS PER CARBOHYDRATES AND BGL READINGS

REACTIONS (4)
  - Drug ineffective [Unknown]
  - Injection site discomfort [Unknown]
  - Drug effect delayed [Unknown]
  - Product quality issue [Unknown]
